FAERS Safety Report 8007506-7 (Version None)
Quarter: 2011Q4

REPORT INFORMATION
  Report Type: 
  Country: None (occurrence: None)
  Receive Date: 20111227
  Receipt Date: 20111222
  Transmission Date: 20120403
  Serious: Yes (Death)
  Sender: FDA-Public Use
  Company Number: JP-ABBOTT-11P-087-0843443-00

PATIENT
  Age: 58 Year
  Sex: Female

DRUGS (9)
  1. SALMETEROL [Concomitant]
     Indication: DIFFUSE PANBRONCHIOLITIS
     Dates: start: 20080901
  2. ST COMPOUND [Concomitant]
     Indication: PRODUCT USED FOR UNKNOWN INDICATION
     Route: 048
  3. MOXIFLOXACIN [Concomitant]
     Indication: DIFFUSE PANBRONCHIOLITIS
     Dates: start: 20080101
  4. N-ACETYLCYSTIME [Concomitant]
     Indication: DIFFUSE PANBRONCHIOLITIS
     Route: 055
  5. AZITHROMYCIN [Concomitant]
     Indication: DIFFUSE PANBRONCHIOLITIS
     Dates: start: 20080101
  6. TIOTOROPIUM [Concomitant]
     Indication: DIFFUSE PANBRONCHIOLITIS
     Dates: start: 20080901
  7. PIPERACILLIN AND TAZOBACTAM [Concomitant]
     Indication: DIFFUSE PANBRONCHIOLITIS
  8. ERYTHROMYCIN [Suspect]
     Indication: DIFFUSE PANBRONCHIOLITIS
     Dates: start: 20051201, end: 20061001
  9. CLARITHROMYCIN [Suspect]
     Indication: DIFFUSE PANBRONCHIOLITIS
     Dates: start: 20061001, end: 20091001

REACTIONS (1)
  - DRUG INEFFECTIVE [None]
